FAERS Safety Report 13901914 (Version 1)
Quarter: 2017Q3

REPORT INFORMATION
  Report Type: Spontaneous
  Country: US (occurrence: US)
  Receive Date: 20170824
  Receipt Date: 20170824
  Transmission Date: 20171127
  Serious: Yes (Other)
  Sender: FDA-Public Use
  Company Number: US-ROCHE-1129726

PATIENT
  Sex: Female

DRUGS (4)
  1. HERCEPTIN [Suspect]
     Active Substance: TRASTUZUMAB
     Indication: BREAST CANCER METASTATIC
     Route: 065
     Dates: start: 19981218
  2. AREDIA [Concomitant]
     Active Substance: PAMIDRONATE DISODIUM
  3. TAXOTERE [Concomitant]
     Active Substance: DOCETAXEL
     Dosage: 60 MG/MM2
     Route: 065
  4. ATIVAN [Concomitant]
     Active Substance: LORAZEPAM

REACTIONS (2)
  - Cough [Unknown]
  - Bone pain [Unknown]
